FAERS Safety Report 9905209 (Version 1)
Quarter: 2013Q2

REPORT INFORMATION
  Report Type: Spontaneous
  Country: US (occurrence: None)
  Receive Date: 20130305
  Receipt Date: 20130305
  Transmission Date: 20140414
  Serious: Yes (Hospitalization)
  Sender: FDA-Public Use
  Company Number: 163-21880-12030712

PATIENT
  Age: 68 Year
  Sex: Male
  Weight: 73.03 kg

DRUGS (1)
  1. REVLIMID [Suspect]
     Indication: PLASMA CELL MYELOMA
     Dosage: 5 MG, DAILY X 3 WEEKS/REPEAT Q 4 WEEKS, PO
     Route: 048
     Dates: start: 20120207, end: 20120213

REACTIONS (1)
  - Rash generalised [None]
